FAERS Safety Report 24801563 (Version 2)
Quarter: 2025Q1

REPORT INFORMATION
  Report Type: Spontaneous
  Country: US (occurrence: US)
  Receive Date: 20250102
  Receipt Date: 20250206
  Transmission Date: 20250408
  Serious: No
  Sender: PFIZER
  Company Number: US-PFIZER INC-PV202400168920

PATIENT
  Age: 70 Year
  Sex: Female

DRUGS (17)
  1. ARTHROTEC [Suspect]
     Active Substance: DICLOFENAC SODIUM\MISOPROSTOL
  2. LEXAPRO [Concomitant]
     Active Substance: ESCITALOPRAM OXALATE
  3. SINGULAIR [Concomitant]
     Active Substance: MONTELUKAST SODIUM
  4. PANTOPRAZOLE SODIUM [Concomitant]
     Active Substance: PANTOPRAZOLE SODIUM
  5. PREDNISONE [Concomitant]
     Active Substance: PREDNISONE
  6. SUCRALFATE [Concomitant]
     Active Substance: SUCRALFATE
  7. DICLOFENAC [Concomitant]
     Active Substance: DICLOFENAC
  8. TIZANIDINE HYDROCHLORIDE [Concomitant]
     Active Substance: TIZANIDINE HYDROCHLORIDE
  9. POTASSIUM CHLORIDE [Concomitant]
     Active Substance: POTASSIUM CHLORIDE
  10. FLORAJEN3 [Concomitant]
  11. BETAMETHASONE DIPROPIONATE [Concomitant]
     Active Substance: BETAMETHASONE DIPROPIONATE
  12. MINOXIDIL [Concomitant]
     Active Substance: MINOXIDIL
  13. LORAZEPAM [Concomitant]
     Active Substance: LORAZEPAM
  14. ACYCLOVIR [Concomitant]
     Active Substance: ACYCLOVIR
  15. HYDROCHLOROTHIAZIDE [Concomitant]
     Active Substance: HYDROCHLOROTHIAZIDE
  16. ESTRADIOL [Concomitant]
     Active Substance: ESTRADIOL
  17. FOSFOMYCIN TROMETHAMINE [Concomitant]
     Active Substance: FOSFOMYCIN TROMETHAMINE

REACTIONS (1)
  - Gastrointestinal disorder [Unknown]
